FAERS Safety Report 15075422 (Version 1)
Quarter: 2018Q2

REPORT INFORMATION
  Report Type: Spontaneous
  Country: US (occurrence: US)
  Receive Date: 20180627
  Receipt Date: 20180627
  Transmission Date: 20180711
  Serious: Yes (Other)
  Sender: FDA-Public Use
  Company Number: US-SAOL THERAPEUTICS-0700667839

PATIENT
  Age: 27 Year
  Sex: Male

DRUGS (8)
  1. LIORESAL [Suspect]
     Active Substance: BACLOFEN
     Dosage: 12.2 ?G, UNK
     Route: 037
  2. BACLOFEN. [Suspect]
     Active Substance: BACLOFEN
     Route: 048
  3. LAMICTAL [Suspect]
     Active Substance: LAMOTRIGINE
  4. LORAZEPAM. [Suspect]
     Active Substance: LORAZEPAM
  5. GABAPENTIN. [Suspect]
     Active Substance: GABAPENTIN
  6. LIORESAL [Suspect]
     Active Substance: BACLOFEN
     Dosage: 643.4 MCG / DAY
     Route: 037
  7. PROPRANOLOL [Suspect]
     Active Substance: PROPRANOLOL HYDROCHLORIDE
  8. RISPERIDONE. [Suspect]
     Active Substance: RISPERIDONE

REACTIONS (2)
  - Muscle spasticity [Unknown]
  - Therapy non-responder [Unknown]

NARRATIVE: CASE EVENT DATE: 20140610
